FAERS Safety Report 10564295 (Version 1)
Quarter: 2014Q4

REPORT INFORMATION
  Report Type: Spontaneous
  Country: US (occurrence: US)
  Receive Date: 20141104
  Receipt Date: 20141104
  Transmission Date: 20150529
  Serious: No
  Sender: FDA-Public Use
  Company Number: US-TEVA-515450USA

PATIENT
  Sex: Male
  Weight: 90.8 kg

DRUGS (5)
  1. HONEY [Concomitant]
     Active Substance: HONEY
  2. CINNAMON. [Concomitant]
     Active Substance: CINNAMON
  3. AZILECT [Suspect]
     Active Substance: RASAGILINE MESYLATE
     Indication: PARKINSON^S DISEASE
     Dosage: 1 MILLIGRAM DAILY;
  4. VITAMIN B [Concomitant]
     Active Substance: VITAMIN B
  5. VITAMIN C [Concomitant]
     Active Substance: ASCORBIC ACID

REACTIONS (2)
  - Tremor [Recovering/Resolving]
  - Gait disturbance [Recovering/Resolving]
